FAERS Safety Report 24662383 (Version 4)
Quarter: 2025Q2

REPORT INFORMATION
  Report Type: Spontaneous
  Country: JP (occurrence: JP)
  Receive Date: 20241125
  Receipt Date: 20250422
  Transmission Date: 20250717
  Serious: Yes (Death)
  Sender: GLAXOSMITHKLINE
  Company Number: JP-GSKJP-JP2024JPN146107AA

PATIENT

DRUGS (8)
  1. DAPRODUSTAT [Suspect]
     Active Substance: DAPRODUSTAT
     Indication: Nephrogenic anaemia
     Dosage: 2 MG, 1D
     Route: 048
     Dates: start: 20220920
  2. FUROSEMIDE [Concomitant]
     Active Substance: FUROSEMIDE
     Indication: Cardiac failure chronic
     Dosage: 20 MG, 1D
     Route: 048
     Dates: start: 20220627
  3. CARVEDILOL [Concomitant]
     Active Substance: CARVEDILOL
     Indication: Cardiac failure chronic
     Dosage: 1.25 MG, 1D
     Route: 048
     Dates: start: 20220627
  4. VONOPRAZAN FUMARATE [Concomitant]
     Active Substance: VONOPRAZAN FUMARATE
     Indication: Gastrooesophageal reflux disease
     Dosage: 10 MG, 1D
     Route: 048
     Dates: start: 20220627
  5. NICORANDIL [Concomitant]
     Active Substance: NICORANDIL
     Indication: Myocardial infarction
     Dosage: 5 MG, TID
     Route: 048
     Dates: start: 20220627
  6. LIMAPROST [Concomitant]
     Active Substance: LIMAPROST
     Indication: Spinal stenosis
     Dosage: 5 ?G, TID
     Route: 048
     Dates: start: 20220627
  7. MAGNESIUM OXIDE [Concomitant]
     Active Substance: MAGNESIUM OXIDE
     Indication: Constipation
     Dosage: 0.5 G, TID
     Route: 048
     Dates: start: 20220630
  8. MEMANTINE HYDROCHLORIDE [Concomitant]
     Active Substance: MEMANTINE HYDROCHLORIDE
     Indication: Dementia Alzheimer^s type
     Dosage: 20 MG, 1D
     Route: 048
     Dates: start: 20230720

REACTIONS (6)
  - Marasmus [Fatal]
  - Decreased appetite [Fatal]
  - Somnolence [Fatal]
  - Asthenia [Fatal]
  - Hypophagia [Fatal]
  - Feeding disorder [Fatal]

NARRATIVE: CASE EVENT DATE: 20240923
